FAERS Safety Report 21304314 (Version 1)
Quarter: 2022Q3

REPORT INFORMATION
  Report Type: Spontaneous
  Country: US (occurrence: None)
  Receive Date: 20220907
  Receipt Date: 20220907
  Transmission Date: 20221026
  Serious: No
  Sender: FDA-Public Use
  Company Number: US-ARIS GLOBAL-202107-1208

PATIENT
  Sex: Female

DRUGS (16)
  1. OXERVATE [Suspect]
     Active Substance: CENEGERMIN-BKBJ
     Indication: Neurotrophic keratopathy
     Route: 047
     Dates: start: 20210708, end: 20210831
  2. TIAZAC [Concomitant]
     Active Substance: DILTIAZEM HYDROCHLORIDE
     Dosage: DELAYED RELEASE CAPSULE
  3. MICARDIS [Concomitant]
     Active Substance: TELMISARTAN
  4. VITAMIN D3 [Concomitant]
     Active Substance: CHOLECALCIFEROL
  5. VITAMIN D3 [Concomitant]
     Active Substance: CHOLECALCIFEROL
  6. ACYCLOVIR [Concomitant]
     Active Substance: ACYCLOVIR
  7. ZIRGAN [Concomitant]
     Active Substance: GANCICLOVIR
  8. AZITHROMYCIN [Concomitant]
     Active Substance: AZITHROMYCIN
  9. ARTIFICIAL TEARS [Concomitant]
     Active Substance: GLYCERIN\HYPROMELLOSES\POLYETHYLENE GLYCOL 400
  10. PREDNISOLONE/NEPAFENAC [Concomitant]
  11. ACETAMINOPHEN [Concomitant]
     Active Substance: ACETAMINOPHEN
  12. FOSAMAX [Concomitant]
     Active Substance: ALENDRONATE SODIUM
  13. FERROUS SULFATE [Concomitant]
     Active Substance: FERROUS SULFATE
     Dosage: 324(65) DELAYED RELEASE TABLET
  14. PRADAXA [Concomitant]
     Active Substance: DABIGATRAN ETEXILATE MESYLATE
  15. GABAPENTIN [Concomitant]
     Active Substance: GABAPENTIN
  16. PRILOSEC [Concomitant]
     Active Substance: OMEPRAZOLE MAGNESIUM
     Dosage: DELAYED RELEASE TABLET

REACTIONS (2)
  - Product use issue [Unknown]
  - Drug ineffective [Unknown]
